FAERS Safety Report 16171192 (Version 1)
Quarter: 2019Q2

REPORT INFORMATION
  Report Type: Spontaneous
  Country: SE (occurrence: SE)
  Receive Date: 20190408
  Receipt Date: 20190408
  Transmission Date: 20190711
  Serious: Yes (Other)
  Sender: FDA-Public Use
  Company Number: SE-PFIZER INC-2019143564

PATIENT

DRUGS (22)
  1. OXASCAND [Concomitant]
     Active Substance: OXAZEPAM
     Dosage: 45 MG, 1X/DAY
     Dates: start: 20190121
  2. MOMETASON [Concomitant]
     Active Substance: MOMETASONE FUROATE
     Dosage: 100 UG, 1X/DAY
     Route: 045
     Dates: start: 20161012
  3. BISOPROLOL KRKA [Concomitant]
     Active Substance: BISOPROLOL FUMARATE
     Dosage: 10 MG, 1X/DAY
     Dates: start: 20150605
  4. ALLOPURINOL NORDIC DRUGS [Concomitant]
     Active Substance: ALLOPURINOL
     Dosage: 250 MG, 1X/DAY
     Route: 065
     Dates: start: 20180314
  5. SPIRIVA [Concomitant]
     Active Substance: TIOTROPIUM BROMIDE MONOHYDRATE
     Dosage: UNK
     Dates: start: 20171114
  6. ATARAX [Concomitant]
     Active Substance: HYDROXYZINE HYDROCHLORIDE
     Dosage: 1-2 TABLETS, AS NEEDED
     Dates: start: 20180926
  7. REMODULIN [Suspect]
     Active Substance: TREPROSTINIL
     Dosage: 0.030 UG/KG
     Route: 041
  8. NOVORAPID [Concomitant]
     Active Substance: INSULIN ASPART
     Dosage: 4-12 IU, AS NEEDED
     Dates: start: 20190122
  9. TROMBYL [Concomitant]
     Active Substance: ASPIRIN
     Dosage: 75 MG, 1X/DAY
     Dates: start: 20120430
  10. FUROSEMID ACCORD [Concomitant]
     Dosage: 2 ML, AS NEEDED
     Dates: start: 20190117
  11. SIMVASTATIN BLUEFISH [Concomitant]
     Dosage: 20 MG, 1X/DAY
     Dates: start: 20160419
  12. BUFOMIX EASYHALER [Concomitant]
     Active Substance: BUDESONIDE\FORMOTEROL FUMARATE
     Dosage: UNK
     Dates: start: 20180314
  13. BEHEPAN [CYANOCOBALAMIN] [Concomitant]
     Dosage: 1 MG, 1X/DAY
     Dates: start: 20150305
  14. OPSUMIT [Concomitant]
     Active Substance: MACITENTAN
     Dosage: 10 MG, 1X/DAY
     Dates: start: 20190116
  15. ADCIRCA [Concomitant]
     Active Substance: TADALAFIL
     Dosage: 20 MG, 1X/DAY
     Route: 065
     Dates: start: 20190115
  16. LYRICA [Suspect]
     Active Substance: PREGABALIN
     Dosage: 100 MG, 1X/DAY
     Dates: start: 20120430
  17. OXASCAND [Concomitant]
     Active Substance: OXAZEPAM
     Dosage: 5 MG, AS NEEDED
     Dates: start: 20181211
  18. REMODULIN [Suspect]
     Active Substance: TREPROSTINIL
     Indication: PULMONARY HYPERTENSION
     Dosage: 0.0025 UG/KG
     Route: 041
     Dates: start: 20190122, end: 20190210
  19. NITROLINGUAL [Concomitant]
     Active Substance: NITROGLYCERIN
     Dosage: 0.4 MG, AS NEEDED
     Route: 060
     Dates: start: 20121119
  20. NOVOTHYRAL [Concomitant]
     Active Substance: LEVOTHYROXINE SODIUM\LIOTHYRONINE SODIUM
     Dosage: 100 UG, 1X/DAY
     Route: 065
  21. BUVENTOL [Concomitant]
     Dosage: UNK, AS NEEDED
     Dates: start: 20171106
  22. LASIX [Concomitant]
     Active Substance: FUROSEMIDE
     Dosage: 240 MG, 1X/DAY
     Route: 065
     Dates: start: 20120430

REACTIONS (5)
  - Cognitive disorder [Recovered/Resolved]
  - Vision blurred [Recovered/Resolved]
  - Restless legs syndrome [Recovered/Resolved]
  - Product use issue [Unknown]
  - Nausea [Recovered/Resolved]

NARRATIVE: CASE EVENT DATE: 20120430
